FAERS Safety Report 7738192-9 (Version None)
Quarter: 2011Q3

REPORT INFORMATION
  Report Type: 
  Country: None (occurrence: None)
  Receive Date: 20110908
  Receipt Date: 20110826
  Transmission Date: 20111222
  Serious: Yes (Hospitalization, Other)
  Sender: FDA-Public Use
  Company Number: JP-CEPHALON-2011004688

PATIENT
  Sex: Female
  Weight: 48 kg

DRUGS (13)
  1. LOXOPROFEN SODIUM [Concomitant]
     Dates: start: 20110225, end: 20110705
  2. TREANDA [Suspect]
     Indication: B-CELL LYMPHOMA
     Route: 042
     Dates: start: 20110203
  3. RITUXIMAB [Concomitant]
     Dates: start: 20110225, end: 20110705
  4. RILMAZAFONE HYDROCHLORIDE [Concomitant]
     Dates: start: 20110323
  5. REBAMIPIDE [Concomitant]
  6. CLEMASTINE FUMARATE [Concomitant]
     Dates: start: 20110225, end: 20110705
  7. ACYCLOVIR [Concomitant]
  8. SULFAMETHOXAZOLE AND TRIMETHOPRIM [Concomitant]
  9. ITRACONAZOLE [Concomitant]
     Dates: end: 20110606
  10. GRANISETRON HYDROCHLORIDE [Concomitant]
     Dates: start: 20110203, end: 20110707
  11. MAGNESIUM OXIDE [Concomitant]
  12. FAMOTIDINE [Concomitant]
  13. ETIZOLAM [Concomitant]

REACTIONS (6)
  - OEDEMA PERIPHERAL [None]
  - SWELLING [None]
  - WHITE BLOOD CELL COUNT DECREASED [None]
  - HYPOGAMMAGLOBULINAEMIA [None]
  - LIVER DISORDER [None]
  - PANCYTOPENIA [None]
